FAERS Safety Report 19451495 (Version 1)
Quarter: 2021Q2

REPORT INFORMATION
  Report Type: Spontaneous
  Country: US (occurrence: US)
  Receive Date: 20210623
  Receipt Date: 20210623
  Transmission Date: 20210717
  Serious: No
  Sender: FDA-Public Use
  Company Number: ALC2020US010297

PATIENT
  Sex: Female

DRUGS (1)
  1. PATADAY ONCE DAILY RELIEF [Suspect]
     Active Substance: OLOPATADINE HYDROCHLORIDE
     Indication: EYE PRURITUS
     Dosage: UNK, QD
     Route: 047

REACTIONS (4)
  - Eye pruritus [Unknown]
  - Eye allergy [Recovering/Resolving]
  - Drug ineffective [Recovering/Resolving]
  - Lacrimation increased [Unknown]
